FAERS Safety Report 22535994 (Version 1)
Quarter: 2023Q2

REPORT INFORMATION
  Report Type: Spontaneous
  Country: CN (occurrence: CN)
  Receive Date: 20230608
  Receipt Date: 20230608
  Transmission Date: 20230721
  Serious: Yes (Life-Threatening)
  Sender: FDA-Public Use
  Company Number: CN-FreseniusKabi-FK202307898

PATIENT
  Age: 34 Year
  Sex: Female
  Weight: 43 kg

DRUGS (1)
  1. PROPOFOL [Suspect]
     Active Substance: PROPOFOL
     Indication: General anaesthesia
     Route: 042
     Dates: start: 20230530, end: 20230530

REACTIONS (1)
  - Diaphragmatic spasm [Recovered/Resolved]

NARRATIVE: CASE EVENT DATE: 20230530
